FAERS Safety Report 25488001 (Version 3)
Quarter: 2025Q3

REPORT INFORMATION
  Report Type: Spontaneous
  Country: US (occurrence: US)
  Receive Date: 20250627
  Receipt Date: 20250916
  Transmission Date: 20251021
  Serious: Yes (Death, Life-Threatening, Hospitalization, Other)
  Sender: LABORATOIRES SERB
  Company Number: US-SERB S.A.S.-2179493

PATIENT
  Age: 21 Year
  Sex: Female

DRUGS (1)
  1. CYANOKIT [Suspect]
     Active Substance: HYDROXOCOBALAMIN
     Indication: Vasoplegia syndrome

REACTIONS (5)
  - Cardiac arrest [Fatal]
  - Drug-device interaction [Fatal]
  - Therapy interrupted [Fatal]
  - Condition aggravated [Fatal]
  - Product use in unapproved indication [Unknown]
